FAERS Safety Report 9108155 (Version 1)
Quarter: 2013Q1

REPORT INFORMATION
  Report Type: Spontaneous
  Country: FR (occurrence: FR)
  Receive Date: 20130221
  Receipt Date: 20130221
  Transmission Date: 20140127
  Serious: Yes (Other)
  Sender: FDA-Public Use
  Company Number: FR-JNJFOC-20130205789

PATIENT
  Age: 4 Decade
  Sex: Male

DRUGS (3)
  1. RISPERDAL [Suspect]
     Indication: PRODUCT USED FOR UNKNOWN INDICATION
     Route: 065
  2. RISPERDAL [Suspect]
     Indication: PRODUCT USED FOR UNKNOWN INDICATION
     Route: 065
     Dates: start: 2004
  3. SOLU-MEDROL [Suspect]
     Indication: PRODUCT USED FOR UNKNOWN INDICATION
     Dosage: BOLUS INJECTION FOR 5 DAYS DURING HOSPITALIZATION IN SEP-2008
     Route: 065
     Dates: start: 200809

REACTIONS (4)
  - Mania [Unknown]
  - Accident [Unknown]
  - Thoracic vertebral fracture [Unknown]
  - Monoplegia [Not Recovered/Not Resolved]
